FAERS Safety Report 7791623-0 (Version None)
Quarter: 2011Q3

REPORT INFORMATION
  Report Type: 
  Country: None (occurrence: None)
  Receive Date: 20110930
  Receipt Date: 20110930
  Transmission Date: 20111222
  Serious: Yes (Hospitalization, Disabling)
  Sender: FDA-Public Use
  Company Number: None

PATIENT
  Age: 59 Year
  Sex: Male
  Weight: 68.2 kg

DRUGS (1)
  1. PRAVASTATIN [Suspect]
     Indication: BLOOD CHOLESTEROL INCREASED
     Dosage: 20MG DAILY
     Dates: start: 20090301, end: 20090601

REACTIONS (5)
  - HAEMORRHAGE [None]
  - VISUAL IMPAIRMENT [None]
  - BONE DISORDER [None]
  - ROAD TRAFFIC ACCIDENT [None]
  - SCAR [None]
